FAERS Safety Report 14732062 (Version 2)
Quarter: 2018Q2

REPORT INFORMATION
  Report Type: Spontaneous
  Country: FR (occurrence: FR)
  Receive Date: 20180408
  Receipt Date: 20180427
  Transmission Date: 20180711
  Serious: Yes (Life-Threatening, Hospitalization, Other)
  Sender: FDA-Public Use
  Company Number: FR-ABBVIE-18K-056-2314715-00

PATIENT
  Sex: Male

DRUGS (1)
  1. DUODOPA [Suspect]
     Active Substance: CARBIDOPA\LEVODOPA
     Indication: PRODUCT USED FOR UNKNOWN INDICATION
     Route: 050

REACTIONS (6)
  - Haematemesis [Unknown]
  - Procedural complication [Unknown]
  - Gastric haemorrhage [Unknown]
  - Arterial haemorrhage [Recovered/Resolved]
  - Aspiration [Unknown]
  - Device occlusion [Unknown]

NARRATIVE: CASE EVENT DATE: 201803
